FAERS Safety Report 13565604 (Version 1)
Quarter: 2017Q2

REPORT INFORMATION
  Report Type: Spontaneous
  Country: CN (occurrence: CN)
  Receive Date: 20170519
  Receipt Date: 20170519
  Transmission Date: 20170830
  Serious: Yes (Other)
  Sender: FDA-Public Use
  Company Number: CN-009507513-1705CHN005851

PATIENT
  Age: 70 Year
  Sex: Male
  Weight: 60 kg

DRUGS (2)
  1. LEVOFLOXACIN LACTATE (+) SODIUM CHLORIDE [Suspect]
     Active Substance: LEVOFLOXACIN LACTATE
     Indication: BACTERIAL INFECTION
     Dosage: 0.6 G, QD
     Route: 041
     Dates: start: 20170222, end: 20170224
  2. TIENAM [Suspect]
     Active Substance: CILASTATIN SODIUM\IMIPENEM
     Indication: BACTERIAL INFECTION
     Dosage: 1 G, TID
     Route: 041
     Dates: start: 20170222, end: 20170223

REACTIONS (3)
  - Tic [Recovering/Resolving]
  - Cyanosis [Recovering/Resolving]
  - Restlessness [Recovering/Resolving]

NARRATIVE: CASE EVENT DATE: 20170223
